FAERS Safety Report 9095070 (Version 1)
Quarter: 2013Q1

REPORT INFORMATION
  Report Type: Spontaneous
  Country: US (occurrence: None)
  Receive Date: 20130214
  Receipt Date: 20130214
  Transmission Date: 20140127
  Serious: Yes (Disabling)
  Sender: FDA-Public Use
  Company Number: None

PATIENT
  Age: 61 Year
  Sex: Female
  Weight: 99.79 kg

DRUGS (2)
  1. PERPHENAZINE [Suspect]
     Indication: BIPOLAR DISORDER
     Dosage: AS NEEDED ....  ...??CAN^T REMEMBER
     Dates: start: 20110720, end: 20120315
  2. PERPHENAZINE [Suspect]
     Indication: ANXIETY
     Dosage: AS NEEDED ....  ...??CAN^T REMEMBER
     Dates: start: 20110720, end: 20120315

REACTIONS (3)
  - Balance disorder [None]
  - Fall [None]
  - Parkinson^s disease [None]
